FAERS Safety Report 21853590 (Version 1)
Quarter: 2023Q1

REPORT INFORMATION
  Report Type: Spontaneous
  Country: US (occurrence: US)
  Receive Date: 20230112
  Receipt Date: 20230112
  Transmission Date: 20230418
  Serious: No
  Sender: FDA-Public Use
  Company Number: US-SA-SAC20230111001316

PATIENT
  Sex: Male
  Weight: 117.93 kg

DRUGS (5)
  1. DUPIXENT [Suspect]
     Active Substance: DUPILUMAB
     Indication: Psoriasis
     Dosage: 300 MG, QOW
     Route: 058
  2. TALTZ [Concomitant]
     Active Substance: IXEKIZUMAB
  3. CLOBETASOL [Concomitant]
     Active Substance: CLOBETASOL
  4. PRILOSEC [Concomitant]
     Active Substance: OMEPRAZOLE MAGNESIUM
  5. ALLEGRA ALLERGY [Concomitant]
     Active Substance: FEXOFENADINE HYDROCHLORIDE

REACTIONS (2)
  - Psoriasis [Recovering/Resolving]
  - Product use in unapproved indication [Unknown]
